FAERS Safety Report 13314371 (Version 1)
Quarter: 2017Q1

REPORT INFORMATION
  Report Type: Spontaneous
  Country: SI (occurrence: SI)
  Receive Date: 20170309
  Receipt Date: 20170309
  Transmission Date: 20170428
  Serious: Yes (Death, Other)
  Sender: FDA-Public Use
  Company Number: SI-BAYER-2017-024401

PATIENT
  Age: 70 Year
  Sex: Male

DRUGS (1)
  1. STIVARGA [Suspect]
     Active Substance: REGORAFENIB
     Indication: COLORECTAL CANCER METASTATIC
     Dosage: DAILY DOSE 120 MG
     Dates: start: 201604, end: 201608

REACTIONS (4)
  - Colorectal cancer metastatic [Fatal]
  - Liver function test increased [None]
  - Hypertension [None]
  - Myalgia [None]

NARRATIVE: CASE EVENT DATE: 201608
